FAERS Safety Report 8554401-0 (Version None)
Quarter: 2012Q3

REPORT INFORMATION
  Report Type: 
  Country: None (occurrence: None)
  Receive Date: 20120731
  Receipt Date: 20120723
  Transmission Date: 20120928
  Serious: Yes (Hospitalization, Other)
  Sender: FDA-Public Use
  Company Number: US-009507513-1207USA009774

PATIENT

DRUGS (6)
  1. COD LIVER OIL [Concomitant]
  2. ACETAMINOPHEN [Concomitant]
  3. ZOCOR [Suspect]
     Dosage: 40 MG, QD
     Route: 048
  4. ASCORBIC ACID [Concomitant]
  5. ZINC (UNSPECIFIED) [Concomitant]
  6. VITAMINS (UNSPECIFIED) [Concomitant]

REACTIONS (2)
  - MYOSITIS [None]
  - HEPATITIS [None]
